FAERS Safety Report 20315059 (Version 1)
Quarter: 2022Q1

REPORT INFORMATION
  Report Type: Other
  Country: US (occurrence: None)
  Receive Date: 20220110
  Receipt Date: 20220110
  Transmission Date: 20220424
  Serious: No
  Sender: FDA-Public Use
  Company Number: US-ROCHE-2741807

PATIENT
  Age: 71 Year
  Sex: Male

DRUGS (11)
  1. RITUXIMAB [Suspect]
     Active Substance: RITUXIMAB
     Indication: Cronkhite-Canada syndrome
     Route: 042
  2. RITUXIMAB [Suspect]
     Active Substance: RITUXIMAB
     Indication: Glomerulonephritis membranous
  3. PREDNISONE [Concomitant]
     Active Substance: PREDNISONE
  4. RANITIDINE [Concomitant]
     Active Substance: RANITIDINE
  5. FEXOFENADINE [Concomitant]
     Active Substance: FEXOFENADINE HYDROCHLORIDE
  6. AZATHIOPRINE [Concomitant]
     Active Substance: AZATHIOPRINE
  7. AZATHIOPRINE [Concomitant]
     Active Substance: AZATHIOPRINE
  8. ALLOPURINOL [Concomitant]
     Active Substance: ALLOPURINOL
  9. CYCLOSPORINE [Concomitant]
     Active Substance: CYCLOSPORINE
  10. LOSARTAN [Concomitant]
     Active Substance: LOSARTAN
  11. TORSEMIDE [Concomitant]
     Active Substance: TORSEMIDE

REACTIONS (3)
  - Off label use [Unknown]
  - Intentional product use issue [Unknown]
  - No adverse event [Unknown]
